FAERS Safety Report 8888946 (Version 1)
Quarter: 2012Q4

REPORT INFORMATION
  Report Type: 
  Country: MX (occurrence: MX)
  Receive Date: 20121106
  Receipt Date: 20121106
  Transmission Date: 20130627
  Serious: Yes (Death)
  Sender: FDA-Public Use
  Company Number: PHHY2012MX088958

PATIENT
  Age: 94 Year
  Sex: Female

DRUGS (5)
  1. DIOVAN [Suspect]
     Indication: HYPERTENSION
     Dosage: 1 DF (80mg) per day
     Route: 048
     Dates: start: 20100708
  2. DIOVAN [Suspect]
     Dosage: 0.5 DF (80mg) per day
     Route: 048
     Dates: start: 20100708
  3. DIOVAN [Suspect]
     Dosage: 1 DF (3200mg) per day
     Route: 048
  4. DIOVAN [Suspect]
     Dosage: 0.5 DF (3200mg) per day
     Route: 048
  5. AMARYL [Concomitant]
     Dosage: 0.5 DF, UNK
     Route: 048
     Dates: start: 2002

REACTIONS (3)
  - Death [Fatal]
  - Balance disorder [Not Recovered/Not Resolved]
  - Wrong technique in drug usage process [Not Recovered/Not Resolved]
